FAERS Safety Report 6157375-5 (Version None)
Quarter: 2009Q2

REPORT INFORMATION
  Report Type: 
  Country: None (occurrence: None)
  Receive Date: 20090416
  Receipt Date: 20090416
  Transmission Date: 20091009
  Serious: Yes (Other)
  Sender: FDA-Public Use
  Company Number: SE-PFIZER INC-2009161150

PATIENT

DRUGS (2)
  1. LIPITOR [Suspect]
     Route: 048
     Dates: start: 20090120, end: 20090120
  2. SIMVASTATIN [Concomitant]
     Dosage: 40 MG, UNK
     Route: 048

REACTIONS (8)
  - ARTHRALGIA [None]
  - DIARRHOEA [None]
  - DIZZINESS [None]
  - GENERAL PHYSICAL HEALTH DETERIORATION [None]
  - HEADACHE [None]
  - HYPERTENSION [None]
  - INSOMNIA [None]
  - POLLAKIURIA [None]
